FAERS Safety Report 4874246-2 (Version None)
Quarter: 2006Q1

REPORT INFORMATION
  Report Type: 
  Country: None (occurrence: None)
  Receive Date: 20060106
  Receipt Date: 20051005
  Transmission Date: 20060701
  Serious: Yes (Hospitalization, Other)
  Sender: FDA-Public Use
  Company Number: US-MERCK-0510USA04367

PATIENT
  Age: 65 Year
  Sex: Female
  Weight: 52 kg

DRUGS (5)
  1. VIOXX [Suspect]
     Indication: ARTHRITIS
     Route: 048
     Dates: start: 19990101, end: 20040101
  2. ZOCOR [Concomitant]
     Indication: HYPERLIPIDAEMIA
     Route: 065
  3. HYDROXYCHLOROQUINE SULFATE [Concomitant]
     Indication: SYSTEMIC LUPUS ERYTHEMATOSUS RASH
     Route: 065
  4. SYNTHROID [Concomitant]
     Route: 065
  5. FOSAMAX [Concomitant]
     Route: 065

REACTIONS (15)
  - BLINDNESS UNILATERAL [None]
  - BLOOD PRESSURE ABNORMAL [None]
  - CAROTID ARTERY STENOSIS [None]
  - CORONARY ARTERY STENOSIS [None]
  - COUGH [None]
  - INTERMITTENT CLAUDICATION [None]
  - MYOCARDIAL INFARCTION [None]
  - MYOCARDIAL ISCHAEMIA [None]
  - PERIPHERAL ARTERIAL OCCLUSIVE DISEASE [None]
  - PRURITUS [None]
  - RETINAL ARTERY EMBOLISM [None]
  - RETINAL ARTERY THROMBOSIS [None]
  - RETROPERITONEAL HAEMORRHAGE [None]
  - THYROID GLAND CANCER [None]
  - TUBERCULOSIS [None]
